FAERS Safety Report 25103288 (Version 1)
Quarter: 2025Q1

REPORT INFORMATION
  Report Type: Other
  Country: BE (occurrence: BE)
  Receive Date: 20250321
  Receipt Date: 20250321
  Transmission Date: 20250409
  Serious: Yes (Life-Threatening, Other)
  Sender: ASPEN
  Company Number: BE-FreseniusKabi-FK202305747

PATIENT

DRUGS (8)
  1. LIDOCAINE HYDROCHLORIDE [Suspect]
     Active Substance: LIDOCAINE HYDROCHLORIDE
     Indication: Analgesic therapy
     Route: 042
     Dates: start: 20230420
  2. PROPOFOL [Suspect]
     Active Substance: PROPOFOL
     Indication: Anaesthesia
     Route: 042
     Dates: start: 20230420
  3. PROPOFOL [Suspect]
     Active Substance: PROPOFOL
     Route: 042
     Dates: start: 20230420
  4. PROPOFOL [Suspect]
     Active Substance: PROPOFOL
     Route: 042
     Dates: start: 20230420
  5. DEXAMETHASONE [Suspect]
     Active Substance: DEXAMETHASONE
     Indication: Nausea
     Route: 042
     Dates: start: 20230420
  6. ROCURONIUM BROMIDE [Suspect]
     Active Substance: ROCURONIUM BROMIDE
     Indication: Neuromuscular blocking therapy
     Route: 042
     Dates: start: 20230420
  7. CARBOMER [Concomitant]
     Active Substance: CARBOMER
     Indication: Product used for unknown indication
     Route: 065
     Dates: start: 20230420
  8. SUFENTANIL [Concomitant]
     Active Substance: SUFENTANIL
     Indication: Analgesic therapy
     Route: 042
     Dates: start: 20230420

REACTIONS (2)
  - Off label use [Unknown]
  - Anaphylactic shock [Unknown]

NARRATIVE: CASE EVENT DATE: 20230420
